FAERS Safety Report 21612934 (Version 1)
Quarter: 2022Q4

REPORT INFORMATION
  Report Type: Other
  Country: CA (occurrence: CA)
  Receive Date: 20221118
  Receipt Date: 20221118
  Transmission Date: 20230112
  Serious: Yes (Hospitalization)
  Sender: FDA-Public Use
  Company Number: CA-APOTEX-2022AP015409

PATIENT
  Age: 41 Year
  Sex: Female
  Weight: 48.073 kg

DRUGS (1)
  1. MOXIFLOXACIN HYDROCHLORIDE [Suspect]
     Active Substance: MOXIFLOXACIN HYDROCHLORIDE
     Indication: Sinusitis
     Dosage: 400 MILLIGRAM, QD
     Route: 048

REACTIONS (5)
  - Ataxia [Unknown]
  - Rash erythematous [Unknown]
  - Skin plaque [Unknown]
  - Swelling [Unknown]
  - Dizziness [Unknown]
